FAERS Safety Report 19701919 (Version 2)
Quarter: 2021Q4

REPORT INFORMATION
  Report Type: Report from Study
  Country: US (occurrence: US)
  Receive Date: 20210813
  Receipt Date: 20211004
  Transmission Date: 20220304
  Serious: No
  Sender: FDA-Public Use
  Company Number: US-INCYTE CORPORATION-2021IN006086

PATIENT

DRUGS (1)
  1. JAKAFI [Interacting]
     Active Substance: RUXOLITINIB
     Indication: Polycythaemia vera
     Dosage: 5 MILLIGRAM, BID
     Route: 048
     Dates: start: 20210624

REACTIONS (5)
  - Hypotension [Unknown]
  - Asthenia [Unknown]
  - Drug interaction [Unknown]
  - Dizziness [Unknown]
  - Hypertension [Unknown]
